FAERS Safety Report 8308062-6 (Version None)
Quarter: 2012Q2

REPORT INFORMATION
  Report Type: 
  Country: None (occurrence: None)
  Receive Date: 20120424
  Receipt Date: 20120417
  Transmission Date: 20120825
  Serious: Yes (Other)
  Sender: FDA-Public Use
  Company Number: US-TEVA-333914USA

PATIENT
  Sex: Female

DRUGS (1)
  1. LISINOPRIL AND HYDROCHLOROTHIAZIDE [Suspect]
     Dosage: 20/25 MG

REACTIONS (7)
  - UNRESPONSIVE TO STIMULI [None]
  - FALL [None]
  - NASOPHARYNGITIS [None]
  - LOSS OF CONSCIOUSNESS [None]
  - STARING [None]
  - LARYNGITIS [None]
  - COUGH [None]
